FAERS Safety Report 5477121-8 (Version None)
Quarter: 2007Q3

REPORT INFORMATION
  Report Type: 
  Country: None (occurrence: None)
  Receive Date: 20070904
  Receipt Date: 20070713
  Transmission Date: 20080115
  Serious: No
  Sender: FDA-Public Use
  Company Number: PHEH2007US01389

PATIENT
  Age: 82 Year
  Sex: Male

DRUGS (1)
  1. ENABLEX [Suspect]

REACTIONS (2)
  - DRUG INEFFECTIVE [None]
  - PRURITUS [None]
